FAERS Safety Report 18810107 (Version 1)
Quarter: 2021Q1

REPORT INFORMATION
  Report Type: Spontaneous
  Country: VN (occurrence: VN)
  Receive Date: 20210129
  Receipt Date: 20210129
  Transmission Date: 20210419
  Serious: Yes (Death)
  Sender: FDA-Public Use
  Company Number: VN-BAYER-2021-030934

PATIENT
  Sex: Female

DRUGS (1)
  1. STIVARGA [Suspect]
     Active Substance: REGORAFENIB
     Indication: COLORECTAL CANCER METASTATIC
     Dosage: 160 MG 3 WEEK ON/1 WEEK OFF
     Route: 048
     Dates: start: 2019

REACTIONS (3)
  - Colorectal cancer metastatic [Fatal]
  - Mucosal inflammation [None]
  - Pruritus [None]

NARRATIVE: CASE EVENT DATE: 2019
